FAERS Safety Report 10288744 (Version 1)
Quarter: 2014Q3

REPORT INFORMATION
  Report Type: Spontaneous
  Country: FR (occurrence: FR)
  Receive Date: 20140709
  Receipt Date: 20140709
  Transmission Date: 20150326
  Serious: Yes (Other)
  Sender: FDA-Public Use
  Company Number: FR-BAXTER-2014BAX035557

PATIENT
  Age: 9 Year
  Sex: Male

DRUGS (1)
  1. ARTISS [Suspect]
     Active Substance: FIBRINOGEN HUMAN\THROMBIN HUMAN
     Indication: SKIN GRAFT
     Route: 061
     Dates: start: 20140623, end: 20140623

REACTIONS (2)
  - Pyrexia [Not Recovered/Not Resolved]
  - Skin graft infection [Not Recovered/Not Resolved]

NARRATIVE: CASE EVENT DATE: 201406
